FAERS Safety Report 25746066 (Version 1)
Quarter: 2025Q3

REPORT INFORMATION
  Report Type: Spontaneous
  Country: BR (occurrence: BR)
  Receive Date: 20250901
  Receipt Date: 20250901
  Transmission Date: 20251020
  Serious: Yes (Congenital Anomaly, Other)
  Sender: CSL BEHRING
  Company Number: BR-BEH-2025217485

PATIENT
  Sex: Male
  Weight: 2.498 kg

DRUGS (5)
  1. HUMAN IMMUNOGLOBULIN G [Suspect]
     Active Substance: HUMAN IMMUNOGLOBULIN G
     Route: 064
  2. HUMAN IMMUNOGLOBULIN G [Suspect]
     Active Substance: HUMAN IMMUNOGLOBULIN G
     Indication: Platelet count decreased
     Route: 042
     Dates: start: 20230516
  3. HUMAN IMMUNOGLOBULIN G [Suspect]
     Active Substance: HUMAN IMMUNOGLOBULIN G
     Route: 042
     Dates: start: 20230516, end: 20230518
  4. ELTROMBOPAG [Suspect]
     Active Substance: ELTROMBOPAG
     Route: 064
  5. PREDNISONE [Suspect]
     Active Substance: PREDNISONE
     Route: 064

REACTIONS (4)
  - Atrial septal defect [Unknown]
  - Haematoma [Unknown]
  - Jaundice neonatal [Unknown]
  - Foetal exposure during pregnancy [Unknown]
